FAERS Safety Report 11074132 (Version 1)
Quarter: 2015Q2

REPORT INFORMATION
  Report Type: Spontaneous
  Country: US (occurrence: None)
  Receive Date: 20150427
  Receipt Date: 20150427
  Transmission Date: 20150821
  Serious: Yes (Other)
  Sender: FDA-Public Use
  Company Number: IT-ALSI-201500076

PATIENT
  Age: 88 Year
  Sex: Female

DRUGS (11)
  1. EUTIROX (LEVOTHYROXINE) [Concomitant]
  2. THEO-DUR (THEOPHYLLINE) [Concomitant]
  3. RAMIPRIL. [Concomitant]
     Active Substance: RAMIPRIL
  4. CARDIOASPIRINE (ACETYLSALICYLIC ACID) [Concomitant]
  5. CITALOPRAM [Concomitant]
     Active Substance: CITALOPRAM HYDROBROMIDE
  6. LORAZEPAM. [Concomitant]
     Active Substance: LORAZEPAM
  7. OXYGEN. [Suspect]
     Active Substance: OXYGEN
     Indication: CHRONIC OBSTRUCTIVE PULMONARY DISEASE
     Route: 055
     Dates: start: 20150410, end: 20150410
  8. LYRICA [Concomitant]
     Active Substance: PREGABALIN
  9. LASIX [Concomitant]
     Active Substance: FUROSEMIDE
  10. METOPROLOL [Concomitant]
     Active Substance: METOPROLOL
  11. FENTANYL. [Concomitant]
     Active Substance: FENTANYL

REACTIONS (2)
  - Syncope [None]
  - Seizure [None]

NARRATIVE: CASE EVENT DATE: 20150410
